FAERS Safety Report 4482368-3 (Version None)
Quarter: 2004Q4

REPORT INFORMATION
  Report Type: 
  Country: None (occurrence: None)
  Receive Date: 20041022
  Receipt Date: 20030902
  Transmission Date: 20050328
  Serious: No
  Sender: FDA-Public Use
  Company Number: US-BRISTOL-MYERS SQUIBB COMPANY-12370235

PATIENT
  Age: 55 Year
  Sex: Male
  Weight: 136 kg

DRUGS (4)
  1. BUSPAR [Suspect]
     Indication: PANIC ATTACK
     Dosage: 14-16 WEEKS IN 2001
     Route: 048
     Dates: start: 20010101
  2. LIPITOR [Concomitant]
  3. KLONOPIN [Concomitant]
  4. UNIVASC [Concomitant]

REACTIONS (4)
  - DIARRHOEA [None]
  - HALLUCINATIONS, MIXED [None]
  - PARAESTHESIA [None]
  - VOMITING [None]
